FAERS Safety Report 21010281 (Version 1)
Quarter: 2022Q3

REPORT INFORMATION
  Report Type: Report from Study
  Country: AU (occurrence: AU)
  Receive Date: 20220627
  Receipt Date: 20220627
  Transmission Date: 20221027
  Serious: Yes (Hospitalization)
  Sender: FDA-Public Use
  Company Number: AU-NOVARTISPH-NVSC2022AU146048

PATIENT
  Sex: Female

DRUGS (1)
  1. COSENTYX [Suspect]
     Active Substance: SECUKINUMAB
     Indication: Ankylosing spondylitis
     Dosage: 150 MG, QMO
     Route: 058
     Dates: start: 20170511

REACTIONS (6)
  - Drug hypersensitivity [Unknown]
  - Dyspnoea [Unknown]
  - Pigmentation disorder [Unknown]
  - Headache [Unknown]
  - Swollen tongue [Unknown]
  - Rhinorrhoea [Unknown]
